FAERS Safety Report 21629182 (Version 2)
Quarter: 2023Q1

REPORT INFORMATION
  Report Type: Spontaneous
  Country: US (occurrence: US)
  Receive Date: 20221122
  Receipt Date: 20230102
  Transmission Date: 20230418
  Serious: No
  Sender: FDA-Public Use
  Company Number: US-SA-2022SA470745

PATIENT
  Age: 48 Year
  Sex: Male

DRUGS (1)
  1. DUPIXENT [Suspect]
     Active Substance: DUPILUMAB
     Dosage: 300 MG, FREQUENCY: OTHER
     Route: 058
     Dates: start: 202208

REACTIONS (3)
  - Dry skin [Unknown]
  - Condition aggravated [Unknown]
  - Pruritus [Unknown]
